FAERS Safety Report 5464263-6 (Version None)
Quarter: 2007Q3

REPORT INFORMATION
  Report Type: 
  Country: None (occurrence: None)
  Receive Date: 20070921
  Receipt Date: 20070918
  Transmission Date: 20080115
  Serious: Yes (Hospitalization, Disabling)
  Sender: FDA-Public Use
  Company Number: A0682750A

PATIENT
  Age: 51 Year
  Sex: Female

DRUGS (8)
  1. LAMICTAL [Suspect]
     Indication: BIPOLAR DISORDER
     Dosage: 100MG TWICE PER DAY
     Route: 048
  2. KLONOPIN [Concomitant]
  3. LITHIUM [Concomitant]
  4. PREMARIN [Concomitant]
  5. SEROQUEL [Concomitant]
  6. ZOLOFT [Concomitant]
  7. ZOMIG [Concomitant]
  8. CELEBREX [Concomitant]

REACTIONS (2)
  - CELLULITIS [None]
  - RASH PRURITIC [None]
